FAERS Safety Report 9796068 (Version 2)
Quarter: 2014Q1

REPORT INFORMATION
  Report Type: Spontaneous
  Country: US (occurrence: US)
  Receive Date: 20140103
  Receipt Date: 20140130
  Transmission Date: 20141002
  Serious: Yes (Hospitalization, Other)
  Sender: FDA-Public Use
  Company Number: US-BRISTOL-MYERS SQUIBB COMPANY-19951532

PATIENT
  Age: 60 Year
  Sex: Male
  Weight: 87.98 kg

DRUGS (1)
  1. GLUCOPHAGE [Suspect]
     Route: 048

REACTIONS (2)
  - Thyroid cancer [Unknown]
  - Blood glucose abnormal [Unknown]
